FAERS Safety Report 4595330-7 (Version None)
Quarter: 2005Q1

REPORT INFORMATION
  Report Type: 
  Country: None (occurrence: None)
  Receive Date: 20050223
  Receipt Date: 20050207
  Transmission Date: 20050727
  Serious: Yes (Hospitalization)
  Sender: FDA-Public Use
  Company Number: 2005PL000007

PATIENT
  Age: 54 Year
  Sex: Female

DRUGS (4)
  1. AZATHIOPRINE [Suspect]
     Indication: SCLERODERMA
     Dosage: 50 MG; DAILY; ORAL
     Route: 048
     Dates: start: 20011001
  2. PREDNISOLONE [Concomitant]
  3. OMEPRAZOLE [Concomitant]
  4. DIPYRIDAMOLE [Concomitant]

REACTIONS (5)
  - BLOOD IMMUNOGLOBULIN G DECREASED [None]
  - DRUG ERUPTION [None]
  - ERYTHEMA [None]
  - LYMPHOCYTE STIMULATION TEST POSITIVE [None]
  - PRURITUS [None]
